FAERS Safety Report 5568507-1 (Version None)
Quarter: 2007Q4

REPORT INFORMATION
  Report Type: 
  Country: None (occurrence: None)
  Receive Date: 20071220
  Receipt Date: 20071212
  Transmission Date: 20080405
  Serious: Yes (Hospitalization)
  Sender: FDA-Public Use
  Company Number: JP-BRISTOL-MYERS SQUIBB COMPANY-14019442

PATIENT
  Age: 43 Year
  Sex: Male

DRUGS (6)
  1. EFAVIRENZ [Suspect]
     Indication: HIV INFECTION
     Dosage: INTERRUPTED ON 25/OCT/02
     Route: 048
     Dates: start: 20010124, end: 20021025
  2. STAVUDINE [Suspect]
     Indication: HIV INFECTION
     Route: 048
     Dates: start: 20010124, end: 20020704
  3. ZIDOVUDINE [Suspect]
     Indication: HIV INFECTION
     Dosage: INTERRUPTED ON 25/OCT/02
     Route: 048
     Dates: start: 20020705, end: 20021025
  4. LAMIVUDINE [Suspect]
     Indication: HIV INFECTION
     Dosage: 300MG/D WAS TAKEN FROM 24/JAN/01-25/OCT/02, DRUG INTERRUPTED ON 25/OCT/02.
     Route: 048
     Dates: start: 20021028
  5. ABACAVIR SULFATE [Concomitant]
     Dates: start: 20021028
  6. SULFAMETHOXAZOLE AND TRIMETHOPRIM [Concomitant]
     Dates: start: 20010124, end: 20020304

REACTIONS (7)
  - ANAEMIA [None]
  - BLOOD URIC ACID INCREASED [None]
  - FACIAL WASTING [None]
  - HEPATIC FUNCTION ABNORMAL [None]
  - HERPES ZOSTER [None]
  - HYPERLACTACIDAEMIA [None]
  - HYPERLIPIDAEMIA [None]
